FAERS Safety Report 6237903-1 (Version None)
Quarter: 2009Q2

REPORT INFORMATION
  Report Type: 
  Country: None (occurrence: None)
  Receive Date: 20090620
  Receipt Date: 20090608
  Transmission Date: 20091009
  Serious: Yes (Other)
  Sender: FDA-Public Use
  Company Number: ES-MYLANLABS-2009S1010344

PATIENT
  Age: 80 Year
  Sex: Female

DRUGS (6)
  1. CAPTOPRIL [Suspect]
     Indication: HYPERTENSION
     Route: 048
  2. CHLOROTHIAZIDE [Suspect]
     Indication: HYPERTENSION
     Route: 048
  3. GLIMEPIRIDE [Concomitant]
  4. METFORMIN HCL [Concomitant]
  5. NITROGLYCERIN [Concomitant]
     Route: 061
  6. FENOFIBRATE [Concomitant]

REACTIONS (2)
  - ANGIOEDEMA [None]
  - RENAL FAILURE [None]
